FAERS Safety Report 4341672-X (Version None)
Quarter: 2004Q2

REPORT INFORMATION
  Report Type: 
  Country: None (occurrence: None)
  Receive Date: 20040415
  Receipt Date: 20040326
  Transmission Date: 20050107
  Serious: Yes (Other)
  Sender: FDA-Public Use
  Company Number: US_0403101902

PATIENT
  Age: 73 Year
  Sex: Female

DRUGS (2)
  1. EVISTA [Suspect]
  2. ACTONEL [Concomitant]

REACTIONS (1)
  - FRACTURE [None]
